FAERS Safety Report 10341324 (Version 1)
Quarter: 2014Q3

REPORT INFORMATION
  Report Type: Report from Study
  Country: IT (occurrence: IT)
  Receive Date: 20140725
  Receipt Date: 20140725
  Transmission Date: 20150326
  Serious: Yes (Death, Other)
  Sender: FDA-Public Use
  Company Number: IT-ROCHE-1439574

PATIENT

DRUGS (13)
  1. CYCLOPHOSPHAMIDE. [Suspect]
     Active Substance: CYCLOPHOSPHAMIDE
     Indication: B-CELL LYMPHOMA
     Dosage: 7 G/M2 ON DAY 3 OF PHASE II
     Route: 065
  2. CARMUSTINE [Suspect]
     Active Substance: CARMUSTINE
     Indication: B-CELL LYMPHOMA
     Route: 065
  3. CYTARABINE. [Suspect]
     Active Substance: CYTARABINE
     Indication: B-CELL LYMPHOMA
     Dosage: 2 G/M2 ON DAYS 2-3 OF PHASE I
     Route: 065
  4. LIPOSOMAL CYTARABINE [Suspect]
     Active Substance: CYTARABINE
     Indication: B-CELL LYMPHOMA
     Dosage: DAY 6 OF PHASE I
     Route: 037
  5. RITUXIMAB [Suspect]
     Active Substance: RITUXIMAB
     Dosage: PHASE III: ON DAYS 5 AND 12
     Route: 065
  6. CYTARABINE. [Suspect]
     Active Substance: CYTARABINE
     Dosage: 2 G/M2 ON DAYS 1-4 OF PHASE III
     Route: 065
  7. LIPOSOMAL CYTARABINE [Suspect]
     Active Substance: CYTARABINE
     Dosage: DAY 6 OF PHASE II
     Route: 037
  8. RITUXIMAB [Suspect]
     Active Substance: RITUXIMAB
     Dosage: PHASE II: ON DAYS 3 AND 11
     Route: 065
  9. METHOTREXATE [Suspect]
     Active Substance: METHOTREXATE
     Indication: B-CELL LYMPHOMA
     Dosage: 3.5 G/M2 ON DAY 1 OF PHASE I
     Route: 065
  10. ETOPOSIDE. [Suspect]
     Active Substance: ETOPOSIDE
     Indication: B-CELL LYMPHOMA
     Dosage: 2 G/M2
     Route: 065
  11. THIOTEPA. [Suspect]
     Active Substance: THIOTEPA
     Indication: B-CELL LYMPHOMA
     Route: 065
  12. RITUXIMAB [Suspect]
     Active Substance: RITUXIMAB
     Indication: B-CELL LYMPHOMA
     Dosage: PHASE I; ON DAYS 3 AND 11
     Route: 065
  13. LIPOSOMAL CYTARABINE [Suspect]
     Active Substance: CYTARABINE
     Dosage: DAY 4 OF PHASE IIIB
     Route: 037

REACTIONS (11)
  - Cytomegalovirus infection [Unknown]
  - Sepsis [Fatal]
  - Anaemia [Unknown]
  - Aspergillus infection [Unknown]
  - Intestinal perforation [Unknown]
  - Febrile neutropenia [Unknown]
  - Cerebrovascular accident [Fatal]
  - Neutropenia [Unknown]
  - Thrombocytopenia [Unknown]
  - Transaminases increased [Unknown]
  - Hepatotoxicity [Unknown]
